FAERS Safety Report 8504972-5 (Version None)
Quarter: 2012Q3

REPORT INFORMATION
  Report Type: 
  Country: None (occurrence: None)
  Receive Date: 20120702
  Receipt Date: 20120528
  Transmission Date: 20120928
  Serious: Yes (Hospitalization)
  Sender: FDA-Public Use
  Company Number: GB-023724

PATIENT
  Age: 71 Year
  Sex: Female

DRUGS (2)
  1. OFATUMUMAB (OFATUMUMAB) (INJECTION) [Suspect]
     Indication: CHRONIC LYMPHOCYTIC LEUKAEMIA
     Dosage: 300 MG ON DAY 1 AND 1000 MG THEREAFTER (1000 MILLIGRAM)  INTRAVENOUS (NOT OTHERWISE SPECIFIED)
     Route: 042
     Dates: start: 20110324
  2. CHLORAMBUCIL (CHLORAMBUCIL) (TABLET) [Suspect]
     Indication: CHRONIC LYMPHOCYTIC LEUKAEMIA
     Dosage: (10 MG/M2) ORAL
     Route: 048
     Dates: start: 20110324

REACTIONS (1)
  - LOWER RESPIRATORY TRACT INFECTION [None]
